FAERS Safety Report 16963557 (Version 3)
Quarter: 2019Q4

REPORT INFORMATION
  Report Type: Spontaneous
  Country: US (occurrence: US)
  Receive Date: 20191025
  Receipt Date: 20191129
  Transmission Date: 20200122
  Serious: Yes (Other)
  Sender: FDA-Public Use
  Company Number: US-009507513-1910USA013387

PATIENT
  Age: 69 Year
  Sex: Female

DRUGS (15)
  1. NITROSTAT [Concomitant]
     Active Substance: NITROGLYCERIN
  2. PROVENTIL [Suspect]
     Active Substance: ALBUTEROL
     Indication: ASTHMA
     Dosage: 2 PUFFS/ EVERY FOUR HOURS AS NEEDED
     Route: 055
  3. PROVENTIL [Suspect]
     Active Substance: ALBUTEROL
     Dosage: 2 PUFFS/ EVERY FOUR HOURS AS NEEDED
     Route: 055
  4. XANAX [Concomitant]
     Active Substance: ALPRAZOLAM
  5. ASPIRIN. [Concomitant]
     Active Substance: ASPIRIN
     Dosage: ^ENTERIC^
  6. HYOSCYAMINE. [Concomitant]
     Active Substance: HYOSCYAMINE
  7. LIPITOR [Concomitant]
     Active Substance: ATORVASTATIN CALCIUM
  8. ULTRAM [Concomitant]
     Active Substance: TRAMADOL HYDROCHLORIDE
  9. ZYRTEC [Concomitant]
     Active Substance: CETIRIZINE HYDROCHLORIDE
  10. LYRICA [Concomitant]
     Active Substance: PREGABALIN
  11. OXYGEN. [Concomitant]
     Active Substance: OXYGEN
  12. PLAVIX [Concomitant]
     Active Substance: CLOPIDOGREL BISULFATE
  13. TESSALON [Concomitant]
     Active Substance: BENZONATATE
  14. RESTORIL (CHLORMEZANONE) [Concomitant]
     Active Substance: CHLORMEZANONE
  15. METOPROLOL. [Concomitant]
     Active Substance: METOPROLOL

REACTIONS (4)
  - Blood pressure increased [Recovered/Resolved]
  - Product quality issue [Unknown]
  - Poor quality device used [Unknown]
  - Cardiac disorder [Unknown]

NARRATIVE: CASE EVENT DATE: 20191020
